FAERS Safety Report 13441613 (Version 1)
Quarter: 2017Q2

REPORT INFORMATION
  Report Type: Spontaneous
  Country: US (occurrence: US)
  Receive Date: 20170413
  Receipt Date: 20170413
  Transmission Date: 20170830
  Serious: No
  Sender: FDA-Public Use
  Company Number: US-JNJFOC-20170323183

PATIENT
  Age: 63 Year
  Sex: Female
  Weight: 81.65 kg

DRUGS (3)
  1. FENTANYL. [Concomitant]
     Active Substance: FENTANYL
     Indication: PRODUCT USED FOR UNKNOWN INDICATION
     Route: 065
     Dates: start: 2014
  2. ULTRAM [Suspect]
     Active Substance: TRAMADOL HYDROCHLORIDE
     Indication: PROCEDURAL PAIN
     Dosage: 1-2 EVERY FOUR TO SIX HOURS
     Route: 048
     Dates: start: 1995
  3. ULTRAM [Suspect]
     Active Substance: TRAMADOL HYDROCHLORIDE
     Indication: PROCEDURAL PAIN
     Dosage: 1 OR 2
     Route: 048
     Dates: start: 2014

REACTIONS (7)
  - Migraine [Unknown]
  - Nausea [Unknown]
  - Neck pain [Unknown]
  - Pain [Not Recovered/Not Resolved]
  - Fall [Recovered/Resolved]
  - Hypokinesia [Unknown]
  - Rash [Unknown]

NARRATIVE: CASE EVENT DATE: 2014
